FAERS Safety Report 10099395 (Version 1)
Quarter: 2014Q2

REPORT INFORMATION
  Report Type: Spontaneous
  Country: CA (occurrence: CA)
  Receive Date: 20140423
  Receipt Date: 20140423
  Transmission Date: 20141212
  Serious: Yes (Other)
  Sender: FDA-Public Use
  Company Number: CA-PERRIGO-14CA003987

PATIENT
  Age: 31 Year
  Sex: Female
  Weight: 55 kg

DRUGS (2)
  1. MIDAZOLAM HCL RX 2 MG/ML 7H8 [Suspect]
     Indication: SEDATIVE THERAPY
     Dosage: 4 MG/KG, UNK
     Route: 065
  2. FENTANYL [Suspect]
     Indication: SEDATIVE THERAPY
     Dosage: 500 MG/KG, UNK
     Route: 065

REACTIONS (1)
  - Hypotension [Recovered/Resolved]
